FAERS Safety Report 4450686-0 (Version None)
Quarter: 2004Q3

REPORT INFORMATION
  Report Type: 
  Country: None (occurrence: None)
  Receive Date: 20040914
  Receipt Date: 20040914
  Transmission Date: 20050211
  Serious: Yes (Hospitalization)
  Sender: FDA-Public Use
  Company Number: None

PATIENT
  Age: 78 Year
  Sex: Male
  Weight: 64.8644 kg

DRUGS (17)
  1. CIPROFLOXACIN [Suspect]
     Indication: URINARY TRACT INFECTION
     Dosage: 250MG  BID  ORAL
     Route: 048
     Dates: start: 20040408, end: 20040413
  2. ACETAMINOPHEN TAB [Concomitant]
  3. ALOH/MGOH/SIMETH [Concomitant]
  4. BISACODYL [Concomitant]
  5. CLOTRIMAZOLE [Concomitant]
  6. COMBIVENT [Concomitant]
  7. DOCUSATE SODIUM [Concomitant]
  8. FUROSEMIDE [Concomitant]
  9. GLUCAGON [Concomitant]
  10. INSULIN HUMAN REGULAR [Concomitant]
  11. LISINOPRIL [Concomitant]
  12. METOPROLOL [Concomitant]
  13. MILK OF MAGNESIA TAB [Concomitant]
  14. MULTIVITAMIN WITH MINERALS [Concomitant]
  15. SIMVASTATIN [Concomitant]
  16. TAMSULOSIN [Concomitant]
  17. GLIPIZIDE [Concomitant]

REACTIONS (1)
  - BLOOD GLUCOSE DECREASED [None]
